FAERS Safety Report 7939047-7 (Version None)
Quarter: 2011Q4

REPORT INFORMATION
  Report Type: 
  Country: None (occurrence: None)
  Receive Date: 20111124
  Receipt Date: 20111115
  Transmission Date: 20120403
  Serious: Yes (Other)
  Sender: FDA-Public Use
  Company Number: FR-PFIZER INC-2011018119

PATIENT
  Age: 64 Year
  Sex: Male

DRUGS (8)
  1. LASIX [Suspect]
     Dosage: UNK
  2. RAMIPRIL [Suspect]
     Dosage: 1.25 MG, 1X/DAY
     Route: 048
     Dates: start: 20101021, end: 20101102
  3. PRASUGREL [Concomitant]
     Dosage: UNK
     Dates: start: 20101021
  4. ALDACTONE [Suspect]
     Dosage: UNK
     Route: 048
     Dates: start: 20101021, end: 20101026
  5. LASIX [Suspect]
     Dosage: 20MG, DAILY
     Route: 048
     Dates: start: 20101021, end: 20101026
  6. ASPIRIN [Concomitant]
     Dosage: UNK
     Dates: start: 20101021
  7. BISOPROLOL FUMARATE [Concomitant]
     Dosage: UNK
     Dates: start: 20101021
  8. ALFUZOSIN HCL [Suspect]
     Dosage: 10 MG, 1X/DAY
     Route: 048
     Dates: start: 20101027, end: 20101104

REACTIONS (2)
  - URINARY RETENTION [None]
  - HYPOTENSION [None]
